FAERS Safety Report 4542778-2 (Version None)
Quarter: 2004Q4

REPORT INFORMATION
  Report Type: 
  Country: None (occurrence: None)
  Receive Date: 20041231
  Receipt Date: 20041223
  Transmission Date: 20050328
  Serious: Yes (Other)
  Sender: FDA-Public Use
  Company Number: 200419807US

PATIENT
  Sex: Female

DRUGS (2)
  1. LOVENOX [Suspect]
     Indication: ABORTION SPONTANEOUS
     Dosage: DOSE: 30 OR 40
  2. LOVENOX [Suspect]
     Indication: PROPHYLAXIS
     Dosage: DOSE: 30 OR 40

REACTIONS (3)
  - ABORTION SPONTANEOUS [None]
  - DRUG EXPOSURE DURING PREGNANCY [None]
  - INJECTION SITE HAEMORRHAGE [None]
